FAERS Safety Report 23121783 (Version 2)
Quarter: 2024Q1

REPORT INFORMATION
  Report Type: Report from Study
  Country: US (occurrence: US)
  Receive Date: 20231030
  Receipt Date: 20240125
  Transmission Date: 20240410
  Serious: Yes (Death, Other)
  Sender: FDA-Public Use
  Company Number: US-ABBVIE-5468101

PATIENT
  Age: 89 Year
  Sex: Female
  Weight: 71.213 kg

DRUGS (1)
  1. IMBRUVICA [Suspect]
     Active Substance: IBRUTINIB
     Indication: Chronic lymphocytic leukaemia
     Dosage: STOP DATE- OCT 2023?STRENGTH-140 MG
     Route: 048
     Dates: start: 20231010

REACTIONS (6)
  - Death [Fatal]
  - Dementia Alzheimer^s type [Unknown]
  - Macular degeneration [Unknown]
  - Confusional state [Unknown]
  - Lethargy [Unknown]
  - Decreased appetite [Unknown]

NARRATIVE: CASE EVENT DATE: 20231001
